FAERS Safety Report 7158492-3 (Version None)
Quarter: 2010Q4

REPORT INFORMATION
  Report Type: 
  Country: None (occurrence: None)
  Receive Date: 20101214
  Receipt Date: 20100507
  Transmission Date: 20110411
  Serious: No
  Sender: FDA-Public Use
  Company Number: US-ASTRAZENECA-2010SE21022

PATIENT
  Age: 806 Month
  Sex: Female
  Weight: 88.5 kg

DRUGS (5)
  1. CRESTOR [Suspect]
     Indication: BLOOD CHOLESTEROL INCREASED
     Route: 048
     Dates: start: 20100301
  2. LISINOPRIL [Concomitant]
  3. GLIPIZIDE [Concomitant]
  4. GENOMET [Concomitant]
  5. VITAMIN D [Concomitant]

REACTIONS (5)
  - ASTHENIA [None]
  - CONSTIPATION [None]
  - DYSPNOEA [None]
  - FATIGUE [None]
  - VISUAL IMPAIRMENT [None]
